FAERS Safety Report 22736021 (Version 7)
Quarter: 2023Q4

REPORT INFORMATION
  Report Type: Report from Study
  Country: US (occurrence: US)
  Receive Date: 20230721
  Receipt Date: 20231222
  Transmission Date: 20240110
  Serious: Yes (Other)
  Sender: FDA-Public Use
  Company Number: US-BIOVITRUM-2023-US-012177

PATIENT
  Age: 42 Year
  Sex: Female

DRUGS (5)
  1. KINERET [Suspect]
     Active Substance: ANAKINRA
     Indication: Pericardial disease
     Dosage: DAILY
     Route: 058
  2. KINERET [Suspect]
     Active Substance: ANAKINRA
     Indication: Pericarditis
     Dosage: 100MG, DAILY
     Route: 058
     Dates: start: 20230606
  3. KINERET [Suspect]
     Active Substance: ANAKINRA
     Dosage: 100MG, DAILY
     Route: 058
     Dates: start: 20230618
  4. KINERET [Suspect]
     Active Substance: ANAKINRA
     Dosage: ONCE EVERY OTHER DAY
     Route: 058
  5. POTASSIUM CHLORIDE [Suspect]
     Active Substance: POTASSIUM CHLORIDE
     Indication: Product used for unknown indication

REACTIONS (17)
  - Cellulitis [Unknown]
  - Cardiac disorder [Unknown]
  - Intentional product misuse [Not Recovered/Not Resolved]
  - Infection [Unknown]
  - Fatigue [Unknown]
  - Feeling abnormal [Unknown]
  - Influenza like illness [Unknown]
  - Product dose omission issue [Unknown]
  - Urinary tract infection [Unknown]
  - Injection site reaction [Unknown]
  - Injection site rash [Unknown]
  - Injection site urticaria [Unknown]
  - Injection site pruritus [Unknown]
  - Arthropod bite [Unknown]
  - Drug hypersensitivity [Unknown]
  - Hepatic enzyme increased [Unknown]
  - Illness [Unknown]

NARRATIVE: CASE EVENT DATE: 20230618
